FAERS Safety Report 5334974-1 (Version None)
Quarter: 2007Q2

REPORT INFORMATION
  Report Type: 
  Country: None (occurrence: None)
  Receive Date: 20070525
  Receipt Date: 20070518
  Transmission Date: 20071010
  Serious: Yes (Hospitalization)
  Sender: FDA-Public Use
  Company Number: US-BRISTOL-MYERS SQUIBB COMPANY-13791439

PATIENT
  Age: 39 Year
  Sex: Female

DRUGS (4)
  1. METFORMIN HCL [Suspect]
     Indication: DIABETES MELLITUS
     Route: 048
     Dates: start: 20060911
  2. BLINDED: LIRAGLUTIDE [Suspect]
     Indication: DIABETES MELLITUS
     Dates: start: 20061030
  3. AVANDIA [Suspect]
     Indication: DIABETES MELLITUS
     Dates: start: 20060811
  4. BLINDED: PLACEBO [Suspect]
     Dates: start: 20061030

REACTIONS (2)
  - ABDOMINAL DISTENSION [None]
  - CHEST DISCOMFORT [None]
